FAERS Safety Report 6019122-7 (Version None)
Quarter: 2008Q4

REPORT INFORMATION
  Report Type: 
  Country: None (occurrence: None)
  Receive Date: 20081224
  Receipt Date: 20080613
  Transmission Date: 20090506
  Serious: Yes (Other)
  Sender: FDA-Public Use
  Company Number: JP-PFIZER INC-2008074191

PATIENT

DRUGS (6)
  1. MIGLITOL [Suspect]
     Indication: TYPE 2 DIABETES MELLITUS
     Dosage: 150 MG, UNK
     Route: 048
     Dates: start: 20080421, end: 20080522
  2. ARTIST [Suspect]
     Dosage: UNK
     Route: 048
  3. ALLOPURINOL [Suspect]
     Dosage: UNK MG, UNK
     Route: 048
  4. ZANTAC [Suspect]
     Dosage: UNK MG, UNK
     Route: 048
  5. CABAGIN-U TAB. [Concomitant]
     Dosage: 75 MG, UNK
     Route: 048
  6. LANIRAPID [Concomitant]
     Dosage: 0.1 MG, UNK
     Route: 048

REACTIONS (2)
  - BLOOD CREATINE PHOSPHOKINASE INCREASED [None]
  - RHABDOMYOLYSIS [None]
